FAERS Safety Report 17055277 (Version 1)
Quarter: 2019Q4

REPORT INFORMATION
  Report Type: Report from Study
  Country: US (occurrence: US)
  Receive Date: 20191120
  Receipt Date: 20191120
  Transmission Date: 20200122
  Serious: Yes (Hospitalization)
  Sender: FDA-Public Use
  Company Number: US-ACTELION-A-NJ2019-198254

PATIENT
  Sex: Female

DRUGS (1)
  1. VELETRI [Suspect]
     Active Substance: EPOPROSTENOL
     Indication: PULMONARY ARTERIAL HYPERTENSION
     Dosage: 4 NG/KG, PER MIN
     Route: 042

REACTIONS (7)
  - Retching [Unknown]
  - Headache [Unknown]
  - Pain in jaw [Unknown]
  - Fatigue [Unknown]
  - Anxiety [Unknown]
  - Panic attack [Unknown]
  - Diarrhoea [Unknown]
